FAERS Safety Report 12545456 (Version 2)
Quarter: 2016Q3

REPORT INFORMATION
  Report Type: Report from Study
  Country: US (occurrence: US)
  Receive Date: 20160711
  Receipt Date: 20160718
  Transmission Date: 20161109
  Serious: Yes (Hospitalization, Other)
  Sender: FDA-Public Use
  Company Number: US-GILEAD-2016-0222939

PATIENT
  Age: 77 Year
  Sex: Female
  Weight: 91.5 kg

DRUGS (1)
  1. AMBRISENTAN [Suspect]
     Active Substance: AMBRISENTAN
     Indication: PULMONARY ARTERIAL HYPERTENSION
     Dosage: 5 MG, QD
     Route: 065

REACTIONS (3)
  - Bradycardia [Recovered/Resolved]
  - Blood potassium decreased [Recovered/Resolved]
  - Syncope [Recovered/Resolved]
